FAERS Safety Report 21935604 (Version 3)
Quarter: 2023Q2

REPORT INFORMATION
  Report Type: Report from Study
  Country: AR (occurrence: AR)
  Receive Date: 20230201
  Receipt Date: 20230418
  Transmission Date: 20230722
  Serious: Yes (Hospitalization, Other)
  Sender: FDA-Public Use
  Company Number: AR-002147023-NVSC2023AR019458

PATIENT
  Age: 54 Year
  Sex: Female

DRUGS (4)
  1. KISQALI [Suspect]
     Active Substance: RIBOCICLIB
     Indication: Breast cancer metastatic
     Dosage: 600 MG, QD
     Route: 048
     Dates: start: 20220708
  2. KISQALI [Suspect]
     Active Substance: RIBOCICLIB
     Dosage: UNK, QD
     Route: 048
  3. KISQALI [Suspect]
     Active Substance: RIBOCICLIB
     Dosage: 200 MG, QD
     Route: 048
     Dates: start: 20220708
  4. LETROZOLE [Suspect]
     Active Substance: LETROZOLE
     Indication: Product used for unknown indication
     Dosage: UNK
     Route: 065

REACTIONS (25)
  - Lung disorder [Unknown]
  - Infection [Unknown]
  - Hypoaesthesia [Unknown]
  - Toxicity to various agents [Unknown]
  - Depressed mood [Unknown]
  - Malaise [Unknown]
  - Depression [Unknown]
  - Bone pain [Unknown]
  - Bone disorder [Unknown]
  - Limb discomfort [Unknown]
  - Pain [Not Recovered/Not Resolved]
  - Condition aggravated [Unknown]
  - Anxiety [Unknown]
  - Muscle discomfort [Unknown]
  - Arthralgia [Unknown]
  - Hypersensitivity [Unknown]
  - White blood cell count decreased [Unknown]
  - Red blood cell count decreased [Unknown]
  - Dizziness [Unknown]
  - Asthenia [Unknown]
  - Decreased immune responsiveness [Unknown]
  - Pain in extremity [Unknown]
  - Neoplasm [Unknown]
  - Urticaria [Unknown]
  - Drug ineffective [Unknown]

NARRATIVE: CASE EVENT DATE: 20220801
